FAERS Safety Report 5166906-3 (Version None)
Quarter: 2006Q4

REPORT INFORMATION
  Report Type: 
  Country: None (occurrence: None)
  Receive Date: 20061129
  Receipt Date: 20061116
  Transmission Date: 20070319
  Serious: Yes (Death, Hospitalization)
  Sender: FDA-Public Use
  Company Number: 2006143172

PATIENT
  Age: 74 Year
  Sex: Female

DRUGS (11)
  1. PREDNISONE TAB [Suspect]
     Indication: PSORIASIS
     Dosage: (7.5 MG, 5 IN 1 WK), ORAL
     Route: 048
     Dates: start: 20010519
  2. PREDNISONE TAB [Suspect]
     Indication: RHEUMATOID ARTHRITIS
     Dosage: (7.5 MG, 5 IN 1 WK), ORAL
     Route: 048
     Dates: start: 20010519
  3. ENBREL [Suspect]
     Indication: PSORIASIS
     Dosage: (25 MG, 2 IN 1 WK), SUBCUTANEOUS
     Route: 058
     Dates: start: 20060206, end: 20060614
  4. ENBREL [Suspect]
     Indication: RHEUMATOID ARTHRITIS
     Dosage: (25 MG, 2 IN 1 WK), SUBCUTANEOUS
     Route: 058
     Dates: start: 20060206, end: 20060614
  5. METHOTREXATE [Suspect]
     Indication: PSORIASIS
     Dosage: (15 MG, 1 IN 1 WK), ORAL
     Route: 048
     Dates: start: 20010519
  6. METHOTREXATE [Suspect]
     Indication: RHEUMATOID ARTHRITIS
     Dosage: (15 MG, 1 IN 1 WK), ORAL
     Route: 048
     Dates: start: 20010519
  7. ALENDRONIC ACID/COLECALCIFEROL (ALENDRONIC ACID, COLECALCIFEROL) [Concomitant]
  8. FOLIC ACID [Concomitant]
  9. IBUPROFEN [Concomitant]
  10. ALUMINIUM HYDR GEL W/MAGNESIUM HYDROXIDE (ALUMINIUM HYDROXIDE GEL, MAG [Concomitant]
  11. LANSOPRAZOLE [Concomitant]

REACTIONS (8)
  - CARDIOPULMONARY FAILURE [None]
  - DEEP VEIN THROMBOSIS [None]
  - DIALYSIS [None]
  - DYSPNOEA [None]
  - GASTRIC CANCER [None]
  - METASTASES TO NERVOUS SYSTEM [None]
  - RENAL FAILURE ACUTE [None]
  - WEIGHT DECREASED [None]
